FAERS Safety Report 5288943-0 (Version None)
Quarter: 2007Q2

REPORT INFORMATION
  Report Type: 
  Country: None (occurrence: None)
  Receive Date: 20070405
  Receipt Date: 20070326
  Transmission Date: 20071010
  Serious: Yes (Death, Hospitalization, Other)
  Sender: FDA-Public Use
  Company Number: DE-PFIZER INC-2006151514

PATIENT
  Sex: Male
  Weight: 65 kg

DRUGS (4)
  1. SUTENT [Suspect]
     Indication: RENAL CELL CARCINOMA STAGE UNSPECIFIED
     Route: 048
     Dates: start: 20061101, end: 20061130
  2. AMPHO-MORONAL [Concomitant]
     Route: 048
  3. KATADOLON [Concomitant]
     Route: 048
  4. SANDOCAL [Concomitant]
     Route: 048

REACTIONS (7)
  - ANOREXIA [None]
  - DISEASE PROGRESSION [None]
  - DRY MOUTH [None]
  - DYSGEUSIA [None]
  - HAEMOPTYSIS [None]
  - LEUKOPENIA [None]
  - PNEUMONIA [None]
